FAERS Safety Report 9830815 (Version 1)
Quarter: 2014Q1

REPORT INFORMATION
  Report Type: Spontaneous
  Country: ZA (occurrence: ZA)
  Receive Date: 20140120
  Receipt Date: 20140120
  Transmission Date: 20141002
  Serious: Yes (Hospitalization)
  Sender: FDA-Public Use
  Company Number: ZA-ABBVIE-14P-143-1188434-00

PATIENT
  Age: 67 Year
  Sex: Female

DRUGS (12)
  1. TRAMACET [Concomitant]
     Indication: OSTEOARTHRITIS
     Route: 048
  2. RASOL/LOSARTAN [Concomitant]
     Indication: ESSENTIAL HYPERTENSION
     Dosage: 100MG IN THE MORNING
     Route: 048
  3. LENDITRO [Concomitant]
     Indication: PRODUCT USED FOR UNKNOWN INDICATION
     Route: 048
  4. BE TABS PREDNISONE [Concomitant]
     Indication: RHEUMATOID ARTHRITIS
     Dosage: 10MG IN THE MORNING
     Route: 048
  5. ASPEN SIMVASTATIN [Concomitant]
     Indication: HYPERCHOLESTEROLAEMIA
     Dosage: 40MG AT NIGHT
     Route: 048
  6. AMLOSYN [Concomitant]
     Indication: HYPERTENSION
     Dosage: 10MG IN THE MORNING
     Route: 048
  7. TREPILENE [Concomitant]
     Indication: SLEEP DISORDER
     Dosage: 10MG AT NIGHT
     Route: 048
  8. PROTOS [Concomitant]
     Indication: OSTEOPOROSIS
     Route: 048
  9. PROTOS [Concomitant]
     Indication: PATHOLOGICAL FRACTURE
  10. ARAVA [Concomitant]
     Indication: RHEUMATOID ARTHRITIS
     Dosage: 20MG IN THE MORNING
     Route: 048
  11. HUMIRA [Suspect]
     Indication: RHEUMATOID ARTHRITIS
     Route: 058
  12. VIMOVO [Concomitant]
     Indication: OSTEOARTHRITIS
     Route: 048

REACTIONS (4)
  - Acute respiratory failure [Recovering/Resolving]
  - Interstitial lung disease [Recovering/Resolving]
  - Pneumonia [Recovering/Resolving]
  - Dyspnoea [Unknown]
